FAERS Safety Report 4524605-2 (Version None)
Quarter: 2004Q4

REPORT INFORMATION
  Report Type: 
  Country: None (occurrence: None)
  Receive Date: 20041117
  Receipt Date: 20040921
  Transmission Date: 20050328
  Serious: Yes (Hospitalization, Other)
  Sender: FDA-Public Use
  Company Number: US-JNJFOC-20040807306

PATIENT
  Age: 73 Year
  Sex: Female
  Weight: 76.6 kg

DRUGS (19)
  1. LEVAQUIN [Suspect]
     Indication: POSTOPERATIVE INFECTION
     Dosage: 500 MG, ORAL
     Route: 048
     Dates: start: 20040807, end: 20040809
  2. TOPRAL XL (SULTOPRIDE) [Concomitant]
  3. PROCARDIA XL [Concomitant]
  4. LASIX [Concomitant]
  5. CATAPRES [Concomitant]
  6. ZOCOR [Concomitant]
  7. ZESTERIL (LISINOPRIL) [Concomitant]
  8. GLUCOTROL [Concomitant]
  9. ARICEPT [Concomitant]
  10. MEPERIDINE HCL [Concomitant]
  11. DOCUSATE (DOCUSATE) [Concomitant]
  12. CITALOPRAM [Concomitant]
  13. FERROUS SULFATE TAB [Concomitant]
  14. HYDROXYZINE [Concomitant]
  15. METOPROLOL TARTRATE [Concomitant]
  16. REGULAR INSULIN [Concomitant]
  17. CEFAZOLIN [Concomitant]
  18. VICODIN [Concomitant]
  19. ISOSORBIDE (ISOSORBIDE) [Concomitant]

REACTIONS (5)
  - ATRIOVENTRICULAR BLOCK FIRST DEGREE [None]
  - HYPERTENSION [None]
  - SINUS BRADYCARDIA [None]
  - SYNCOPE [None]
  - TORSADE DE POINTES [None]
